FAERS Safety Report 16836034 (Version 2)
Quarter: 2019Q4

REPORT INFORMATION
  Report Type: Spontaneous
  Country: BE (occurrence: BE)
  Receive Date: 20190920
  Receipt Date: 20191001
  Transmission Date: 20200122
  Serious: Yes (Death, Other)
  Sender: FDA-Public Use
  Company Number: BE-TAKEDA-2019TUS053166

PATIENT
  Sex: Female

DRUGS (2)
  1. ICLUSIG [Suspect]
     Active Substance: PONATINIB
     Indication: PRODUCT USED FOR UNKNOWN INDICATION
     Dosage: UNK
     Route: 048
     Dates: start: 20190907
  2. DEXA                               /00016001/ [Concomitant]
     Active Substance: DEXAMETHASONE
     Indication: PRODUCT USED FOR UNKNOWN INDICATION
     Dosage: UNK
     Route: 065

REACTIONS (5)
  - Cardiac disorder [Fatal]
  - Pancytopenia [Unknown]
  - Septic shock [Unknown]
  - Infarction [Unknown]
  - Hypokinesia [Unknown]

NARRATIVE: CASE EVENT DATE: 201909
